FAERS Safety Report 17589169 (Version 1)
Quarter: 2020Q1

REPORT INFORMATION
  Report Type: Spontaneous
  Country: US (occurrence: US)
  Receive Date: 20200327
  Receipt Date: 20200327
  Transmission Date: 20200409
  Serious: No
  Sender: FDA-Public Use
  Company Number: US-ALLERGAN-1914347US

PATIENT
  Age: 65 Year
  Sex: Female

DRUGS (5)
  1. LATISSE [Suspect]
     Active Substance: BIMATOPROST
     Indication: PRODUCT USED FOR UNKNOWN INDICATION
     Dosage: 2 GTT, 2-3 TIMES PER WEEK AT NIGHT
     Route: 061
     Dates: end: 201903
  2. VITAMINS [Concomitant]
     Active Substance: VITAMINS
     Dosage: UNK
  3. EYELINER [Concomitant]
  4. MASCARA [Concomitant]
  5. CONTACT MOISTURE DROPS [Concomitant]
     Dosage: UNK

REACTIONS (5)
  - Inappropriate schedule of product administration [Unknown]
  - Expired product administered [Unknown]
  - Product complaint [Unknown]
  - Wrong technique in product usage process [Unknown]
  - Hypersensitivity [Recovered/Resolved]
